FAERS Safety Report 11338838 (Version 1)
Quarter: 2015Q3

REPORT INFORMATION
  Report Type: Spontaneous
  Country: US (occurrence: US)
  Receive Date: 20150803
  Receipt Date: 20150803
  Transmission Date: 20151125
  Serious: No
  Sender: FDA-Public Use
  Company Number: US-ELI_LILLY_AND_COMPANY-US200809001583

PATIENT
  Sex: Female

DRUGS (2)
  1. STRATTERA [Suspect]
     Active Substance: ATOMOXETINE HYDROCHLORIDE
     Indication: DEPRESSION
     Dosage: 54 MG, DAILY (1/D)
     Dates: start: 200809
  2. STRATTERA [Suspect]
     Active Substance: ATOMOXETINE HYDROCHLORIDE
     Dosage: 36 MG, UNK
     Dates: start: 2008, end: 200809

REACTIONS (8)
  - Anxiety [Unknown]
  - Headache [Unknown]
  - Malaise [Unknown]
  - Depression [Unknown]
  - Diarrhoea [Unknown]
  - Muscle spasms [Unknown]
  - Muscle strain [Unknown]
  - Insomnia [Unknown]

NARRATIVE: CASE EVENT DATE: 2008
